FAERS Safety Report 4376114-1 (Version None)
Quarter: 2004Q2

REPORT INFORMATION
  Report Type: 
  Country: None (occurrence: None)
  Receive Date: 20040609
  Receipt Date: 20040609
  Transmission Date: 20050107
  Serious: Yes (Hospitalization)
  Sender: FDA-Public Use
  Company Number: None

PATIENT
  Age: 50 Year
  Sex: Female
  Weight: 110 kg

DRUGS (14)
  1. DICLOFENAC SODIUM [Suspect]
     Indication: ABDOMINAL PAIN
     Dosage: 75 MG PO BID
     Route: 048
     Dates: start: 20040229, end: 20040304
  2. MISOPROSTOL [Suspect]
     Dosage: 200 MG PO BID
     Route: 048
     Dates: start: 20040229, end: 20040304
  3. ASPIRIN [Concomitant]
  4. CARISOPRODOL [Concomitant]
  5. CLOPIDOGREL BISULFATE [Concomitant]
  6. KCL TAB [Concomitant]
  7. LISINOPRIL [Concomitant]
  8. SIMVASTATIN [Concomitant]
  9. MONTELVAST [Concomitant]
  10. ALBUTERAL [Concomitant]
  11. HUMALOG [Concomitant]
  12. FAMOTIDINE [Concomitant]
  13. COLACE [Concomitant]
  14. PREVACID [Concomitant]

REACTIONS (2)
  - ABDOMINAL PAIN UPPER [None]
  - NAUSEA [None]
